FAERS Safety Report 14204303 (Version 1)
Quarter: 2017Q4

REPORT INFORMATION
  Report Type: Not Available
  Country: US (occurrence: US)
  Receive Date: 20171120
  Receipt Date: 20171120
  Transmission Date: 20180321
  Serious: Yes (Other)
  Sender: FDA-Public Use
  Company Number: US-FOUNDATIONCONSUMERHC-2017-US-013626

PATIENT
  Age: 21 Year
  Sex: Female
  Weight: 72.58 kg

DRUGS (3)
  1. MIDOL [Concomitant]
     Active Substance: IBUPROFEN
     Dosage: USED AS NEEDED
  2. IBUPROFEN. [Concomitant]
     Active Substance: IBUPROFEN
     Dosage: USED AS NEEDED
  3. PLAN B ONE-STEP [Suspect]
     Active Substance: LEVONORGESTREL
     Dosage: 1 TABLET ONCE
     Route: 048
     Dates: start: 201708, end: 201708

REACTIONS (5)
  - Premenstrual headache [Not Recovered/Not Resolved]
  - Menorrhagia [Not Recovered/Not Resolved]
  - Menstrual disorder [Unknown]
  - Dysmenorrhoea [Not Recovered/Not Resolved]
  - Blindness [Unknown]

NARRATIVE: CASE EVENT DATE: 201711
